FAERS Safety Report 8079332-4 (Version None)
Quarter: 2012Q1

REPORT INFORMATION
  Report Type: 
  Country: None (occurrence: None)
  Receive Date: 20120128
  Receipt Date: 20110819
  Transmission Date: 20120608
  Serious: No
  Sender: FDA-Public Use
  Company Number: US-ABBOTT-11P-163-0848384-00

PATIENT
  Sex: Female
  Weight: 88.53 kg

DRUGS (4)
  1. KLOR-CON [Concomitant]
     Indication: MINERAL SUPPLEMENTATION
  2. LISINOPRIL AND HYDROCHLOROTHIAZIDE [Concomitant]
     Indication: HYPERTENSION
     Dosage: 20/25MG
  3. FERROUS SULFATE TAB [Concomitant]
     Indication: ANAEMIA
  4. HUMIRA [Suspect]
     Indication: RHEUMATOID ARTHRITIS
     Route: 058
     Dates: start: 20110401

REACTIONS (5)
  - WEIGHT DECREASED [None]
  - PRODUCTIVE COUGH [None]
  - NAUSEA [None]
  - PAIN [None]
  - FATIGUE [None]
